FAERS Safety Report 7959889-1 (Version None)
Quarter: 2011Q4

REPORT INFORMATION
  Report Type: 
  Country: None (occurrence: None)
  Receive Date: 20111206
  Receipt Date: 20111129
  Transmission Date: 20120403
  Serious: Yes (Death, Hospitalization, Other)
  Sender: FDA-Public Use
  Company Number: PHHY2011IT105925

PATIENT
  Age: 58 Year
  Sex: Male

DRUGS (4)
  1. METHYLPREDNISOLONE [Suspect]
     Indication: LIVER TRANSPLANT
     Dosage: 500 MG, UNK
     Route: 042
  2. PREDNISONE TAB [Suspect]
     Indication: LIVER TRANSPLANT
     Dosage: 25 MG, QD
  3. TACROLIMUS [Suspect]
     Indication: LIVER TRANSPLANT
     Dosage: UNK UKN, UNK
  4. BASILIXIMAB [Suspect]
     Indication: LIVER TRANSPLANT
     Dosage: 2 MG, IN ANHEPATIC PHASE AND AT DAY 4 POST TRANSPLANTATION
     Route: 042

REACTIONS (10)
  - COUGH [None]
  - PLEURAL EFFUSION [None]
  - RENAL FUNCTION TEST ABNORMAL [None]
  - CYTOMEGALOVIRUS INFECTION [None]
  - HUMAN HERPESVIRUS 8 INFECTION [None]
  - RENAL FAILURE [None]
  - MULTI-ORGAN FAILURE [None]
  - PYREXIA [None]
  - LIVER FUNCTION TEST ABNORMAL [None]
  - ASCITES [None]
